FAERS Safety Report 9599557 (Version 1)
Quarter: 2013Q4

REPORT INFORMATION
  Report Type: Spontaneous
  Country: US (occurrence: US)
  Receive Date: 20131004
  Receipt Date: 20131004
  Transmission Date: 20140711
  Serious: No
  Sender: FDA-Public Use
  Company Number: US-AMGEN-USASP2013030369

PATIENT
  Sex: Male
  Weight: 78.91 kg

DRUGS (3)
  1. ENBREL [Suspect]
     Indication: PSORIATIC ARTHROPATHY
     Dosage: 50 MG, UNK
     Route: 058
     Dates: start: 20040429, end: 20060429
  2. VITAMIN D                          /00107901/ [Concomitant]
     Dosage: UNK
  3. AMITIZA [Concomitant]
     Dosage: UNK

REACTIONS (1)
  - Hepatic enzyme increased [Unknown]
